FAERS Safety Report 7169955-9 (Version None)
Quarter: 2010Q4

REPORT INFORMATION
  Report Type: 
  Country: None (occurrence: None)
  Receive Date: 20101217
  Receipt Date: 20101209
  Transmission Date: 20110411
  Serious: Yes (Hospitalization, Other)
  Sender: FDA-Public Use
  Company Number: JP-BRISTOL-MYERS SQUIBB COMPANY-15325475

PATIENT
  Age: 66 Year
  Sex: Male

DRUGS (10)
  1. ABILIFY [Suspect]
     Indication: HALLUCINATION
     Dosage: ORAL SOLUTION 0.1%;INT:16SEP10;24OCT07:16SEP10(1059D);RESTARTED 15OCT10:2.5MG/DAYUNK
     Route: 065
     Dates: start: 20071024
  2. ABILIFY [Suspect]
     Indication: DELUSION
     Dosage: ORAL SOLUTION 0.1%;INT:16SEP10;24OCT07:16SEP10(1059D);RESTARTED 15OCT10:2.5MG/DAYUNK
     Route: 065
     Dates: start: 20071024
  3. MYSLEE [Suspect]
     Indication: INSOMNIA
     Dosage: TAB
     Route: 048
     Dates: start: 20091020, end: 20100916
  4. HALCION [Suspect]
     Indication: INSOMNIA
     Dosage: TAB
     Route: 048
     Dates: start: 20100813, end: 20100916
  5. PARKISTON [Suspect]
     Indication: PARKINSONISM
     Dosage: PARKISTON  TAB INT: 16SEP10 (322DAYS)REST: 13OCT 2010
     Route: 048
     Dates: start: 20091030
  6. QUAZEPAM [Suspect]
     Indication: INSOMNIA
     Dosage: TABS
     Dates: start: 20071121, end: 20100916
  7. HIBERNA [Suspect]
     Indication: HALLUCINATION
     Dates: start: 20091024, end: 20100916
  8. HIBERNA [Suspect]
     Indication: DELUSION
     Dates: start: 20091024, end: 20100916
  9. AKINETON [Suspect]
     Indication: PARKINSONISM
     Dosage: GRANULE
     Dates: start: 20100916
  10. LORAMET [Concomitant]
     Dosage: TABS
     Dates: start: 20100922

REACTIONS (3)
  - DYSPHAGIA [None]
  - LIVER DISORDER [None]
  - PNEUMONIA [None]
